FAERS Safety Report 8536717-7 (Version None)
Quarter: 2012Q3

REPORT INFORMATION
  Report Type: 
  Country: None (occurrence: None)
  Receive Date: 20120725
  Receipt Date: 20120711
  Transmission Date: 20120928
  Serious: Yes (Hospitalization)
  Sender: FDA-Public Use
  Company Number: US-MYLANLABS-2012S1014586

PATIENT
  Age: 65 Year
  Sex: Male

DRUGS (4)
  1. ASCORBIC ACID [Suspect]
     Indication: SMALL CELL LUNG CANCER METASTATIC
     Dosage: INCREASING DOSES BIWEEKLY
     Route: 041
  2. VISCUM ALBUM EXTRACT [Interacting]
     Indication: SMALL CELL LUNG CANCER METASTATIC
     Dosage: EVERY 3 DAYS
     Route: 065
  3. LEVETIRACETAM [Interacting]
     Dosage: MAXIMAL DOSING
     Route: 065
  4. VALPROIC ACID [Interacting]
     Dosage: MAXIMAL DOSING
     Route: 065

REACTIONS (5)
  - CONVULSIVE THRESHOLD LOWERED [None]
  - CEREBRAL HAEMORRHAGE [None]
  - CONDITION AGGRAVATED [None]
  - DRUG INTERACTION [None]
  - CONVULSION [None]
